FAERS Safety Report 7719060-5 (Version None)
Quarter: 2011Q3

REPORT INFORMATION
  Report Type: 
  Country: None (occurrence: None)
  Receive Date: 20110830
  Receipt Date: 20110819
  Transmission Date: 20111222
  Serious: Yes (Hospitalization, Disabling, Other)
  Sender: FDA-Public Use
  Company Number: US-MERCK-1011USA01585

PATIENT
  Age: 69 Year
  Sex: Female

DRUGS (10)
  1. FOSAMAX [Suspect]
     Route: 048
     Dates: start: 20060101, end: 20061101
  2. FOSAMAX [Suspect]
     Route: 048
     Dates: start: 20070501, end: 20070901
  3. VITAMIN E [Concomitant]
     Route: 065
     Dates: start: 19960101, end: 20110301
  4. ALENDRONATE SODIUM [Suspect]
     Route: 065
     Dates: start: 20080701, end: 20080101
  5. CALCIUM CITRATE [Concomitant]
     Route: 065
  6. FOSAMAX [Suspect]
     Indication: OSTEOPENIA
     Route: 048
     Dates: start: 20011114, end: 20050801
  7. VITAMINS (UNSPECIFIED) [Concomitant]
     Route: 065
     Dates: start: 19960101
  8. CALCIUM CARBONATE [Concomitant]
     Route: 065
     Dates: start: 20000101
  9. FOSAMAX [Suspect]
     Route: 048
     Dates: start: 20080101, end: 20081101
  10. FOSAMAX [Suspect]
     Route: 048
     Dates: start: 19970101, end: 20000726

REACTIONS (58)
  - FEMUR FRACTURE [None]
  - INTERVERTEBRAL DISC PROTRUSION [None]
  - FALL [None]
  - SPINAL COLUMN STENOSIS [None]
  - HAEMORRHOIDS [None]
  - DEFORMITY [None]
  - SPINAL OSTEOARTHRITIS [None]
  - DIARRHOEA [None]
  - TOOTH FRACTURE [None]
  - CERVICOBRACHIAL SYNDROME [None]
  - BUNION [None]
  - OSTEOARTHRITIS [None]
  - STRESS FRACTURE [None]
  - BREAST NECROSIS [None]
  - HYPERCHOLESTEROLAEMIA [None]
  - GINGIVAL DISORDER [None]
  - SMEAR CERVIX ABNORMAL [None]
  - ARTHRALGIA [None]
  - MIXED INCONTINENCE [None]
  - COLONIC POLYP [None]
  - BRONCHITIS [None]
  - BUNDLE BRANCH BLOCK RIGHT [None]
  - BREAST CANCER IN SITU [None]
  - STRESS URINARY INCONTINENCE [None]
  - CONTUSION [None]
  - INFECTION [None]
  - ROTATOR CUFF SYNDROME [None]
  - HYPERTENSION [None]
  - ANAEMIA POSTOPERATIVE [None]
  - BREAST NEOPLASM [None]
  - ARTHROPATHY [None]
  - UTERINE MASS [None]
  - TYPE 2 DIABETES MELLITUS [None]
  - TENDON DISORDER [None]
  - LUMBAR RADICULOPATHY [None]
  - BONE DISORDER [None]
  - AVULSION FRACTURE [None]
  - DYSKINESIA [None]
  - VULVOVAGINAL CANDIDIASIS [None]
  - TOOTH DISORDER [None]
  - INFLAMMATORY BOWEL DISEASE [None]
  - BREAST FIBROSIS [None]
  - ARTHRITIS [None]
  - CONSTIPATION [None]
  - DYSPHONIA [None]
  - SINUSITIS [None]
  - SLEEP APNOEA SYNDROME [None]
  - MUSCLE SPASMS [None]
  - NOCTURIA [None]
  - BURSITIS [None]
  - SCIATICA [None]
  - CERVICAL DYSPLASIA [None]
  - LIGAMENT SPRAIN [None]
  - MENISCUS LESION [None]
  - LOW TURNOVER OSTEOPATHY [None]
  - ASTHENIA [None]
  - DRY MOUTH [None]
  - NERVE COMPRESSION [None]
